FAERS Safety Report 10424562 (Version 2)
Quarter: 2014Q3

REPORT INFORMATION
  Report Type: Report from Study
  Country: CA (occurrence: CA)
  Receive Date: 20140902
  Receipt Date: 20140902
  Transmission Date: 20150326
  Serious: Yes (Hospitalization, Other)
  Sender: FDA-Public Use
  Company Number: CA-ABBVIE-13P-028-1183979-00

PATIENT
  Age: 83 Year
  Sex: Female

DRUGS (17)
  1. ASPIRIN. [Concomitant]
     Active Substance: ASPIRIN
     Indication: PRODUCT USED FOR UNKNOWN INDICATION
  2. VITAMIN B12 [Concomitant]
     Active Substance: CYANOCOBALAMIN
     Indication: VITAMIN SUPPLEMENTATION
  3. HUMIRA [Suspect]
     Active Substance: ADALIMUMAB
     Route: 058
  4. LORAZEPAM. [Concomitant]
     Active Substance: LORAZEPAM
     Indication: INSOMNIA
  5. DIDROCAL [Concomitant]
     Active Substance: CALCIUM CARBONATE\ETIDRONATE DISODIUM
     Indication: PRODUCT USED FOR UNKNOWN INDICATION
     Dosage: 500/400
  6. BRIMONIDINE [Concomitant]
     Active Substance: BRIMONIDINE\BRIMONIDINE TARTRATE
     Indication: GLAUCOMA
     Dosage: ONE DROP TO EACH EYE
  7. SPIRIVA [Concomitant]
     Active Substance: TIOTROPIUM BROMIDE MONOHYDRATE
     Indication: PRODUCT USED FOR UNKNOWN INDICATION
  8. TYLENOL EXTRA STRENGTH [Concomitant]
     Active Substance: ACETAMINOPHEN
     Indication: RHEUMATOID ARTHRITIS
     Dosage: EXTRA STRENGTH
  9. ADVIL [Concomitant]
     Active Substance: IBUPROFEN
     Indication: RHEUMATOID ARTHRITIS
  10. LIPITOR [Concomitant]
     Active Substance: ATORVASTATIN CALCIUM
     Indication: BLOOD CHOLESTEROL INCREASED
  11. VITALUX [Concomitant]
     Indication: VITAMIN SUPPLEMENTATION
  12. LURNIGAN [Concomitant]
     Indication: GLAUCOMA
     Dosage: ONE DROP EACH EYE
  13. VENTOLIN [Concomitant]
     Active Substance: ALBUTEROL SULFATE
     Indication: PRODUCT USED FOR UNKNOWN INDICATION
  14. HUMIRA [Suspect]
     Active Substance: ADALIMUMAB
     Indication: PRODUCT USED FOR UNKNOWN INDICATION
     Route: 058
     Dates: start: 200203
  15. GRAVOL [Concomitant]
     Active Substance: DIMENHYDRINATE
     Indication: DYSPEPSIA
  16. CO ETIDROCAL [Concomitant]
     Indication: OSTEOPOROSIS
     Dosage: 400/500 MG
  17. METAMUCIL [Concomitant]
     Active Substance: PLANTAGO SEED
     Indication: HAEMORRHOIDS

REACTIONS (13)
  - Red blood cell sedimentation rate increased [Unknown]
  - Mean cell volume increased [Unknown]
  - Vitamin B12 increased [Unknown]
  - Ischaemic stroke [Unknown]
  - Monocyte count increased [Unknown]
  - Pituitary tumour benign [Unknown]
  - Hypothyroidism [Unknown]
  - Red blood cell count increased [Unknown]
  - Mean cell haemoglobin concentration decreased [Unknown]
  - Glioma [Unknown]
  - Pneumonia [Recovered/Resolved]
  - Carotid arteriosclerosis [Unknown]
  - Blood immunoglobulin G increased [Unknown]

NARRATIVE: CASE EVENT DATE: 201310
